FAERS Safety Report 8222152-8 (Version None)
Quarter: 2012Q1

REPORT INFORMATION
  Report Type: 
  Country: None (occurrence: None)
  Receive Date: 20120320
  Receipt Date: 20120313
  Transmission Date: 20120608
  Serious: Yes (Death)
  Sender: FDA-Public Use
  Company Number: GB-UCBSA-053322

PATIENT
  Age: 38 Year
  Sex: Male

DRUGS (3)
  1. PIRACETAM [Concomitant]
     Dosage: DOSE NOT SURE
  2. VIMPAT [Suspect]
  3. LAMOTRIGINE [Concomitant]
     Dosage: DAILY DOSE: 700 MG

REACTIONS (1)
  - SUDDEN UNEXPLAINED DEATH IN EPILEPSY [None]
